FAERS Safety Report 4918246-2 (Version None)
Quarter: 2006Q1

REPORT INFORMATION
  Report Type: 
  Country: None (occurrence: None)
  Receive Date: 20060214
  Receipt Date: 20060203
  Transmission Date: 20060701
  Serious: Yes (Hospitalization, Other)
  Sender: FDA-Public Use
  Company Number: HQWYE646503FEB06

PATIENT
  Age: 33 Year
  Sex: Male

DRUGS (3)
  1. TAZOCIN (PIPERACILLIN/TAZOBACTAM, INJECTION) [Suspect]
     Indication: INFECTION
     Dosage: 4.5 G 3X PER 1 DAY
     Route: 042
     Dates: start: 20050920, end: 20051015
  2. TEICOPLANIN (TEICOPLANIN) [Concomitant]
  3. CIPROFLOXACIN [Concomitant]

REACTIONS (4)
  - PLATELET COUNT ABNORMAL [None]
  - THROMBOCYTHAEMIA [None]
  - WHITE BLOOD CELL COUNT ABNORMAL [None]
  - WHITE BLOOD CELL COUNT DECREASED [None]
